FAERS Safety Report 6015579-6 (Version None)
Quarter: 2008Q4

REPORT INFORMATION
  Report Type: 
  Country: None (occurrence: None)
  Receive Date: 20081218
  Receipt Date: 20081209
  Transmission Date: 20090506
  Serious: Yes (Hospitalization)
  Sender: FDA-Public Use
  Company Number: 005200

PATIENT
  Age: 27 Year
  Sex: Female

DRUGS (11)
  1. BUSULFEX [Suspect]
     Indication: STEM CELL TRANSPLANT
     Dosage: 7.5 ML, TID 7.5 ML, QID 7.5 ML, QD
     Route: 042
     Dates: start: 20070517, end: 20070517
  2. BUSULFEX [Suspect]
     Indication: STEM CELL TRANSPLANT
     Dosage: 7.5 ML, TID 7.5 ML, QID 7.5 ML, QD
     Route: 042
     Dates: start: 20070518, end: 20070520
  3. BUSULFEX [Suspect]
     Indication: STEM CELL TRANSPLANT
     Dosage: 7.5 ML, TID 7.5 ML, QID 7.5 ML, QD
     Route: 042
     Dates: start: 20070521, end: 20070521
  4. METHOTREXATE [Suspect]
  5. ENDOXAN NET (CYCLOPHOSPHAMIDE) [Suspect]
     Dates: start: 20070522, end: 20070523
  6. FOSCAVIR [Suspect]
  7. NEORAL [Suspect]
  8. TACROLIMUS [Suspect]
  9. LASIX [Suspect]
  10. DEPAKENE [Concomitant]
  11. FILGRAST (FILGRASTIM) [Concomitant]

REACTIONS (17)
  - ANOREXIA [None]
  - CHEST PAIN [None]
  - CYTOMEGALOVIRUS ENTEROCOLITIS [None]
  - CYTOMEGALOVIRUS VIRAEMIA [None]
  - DIARRHOEA [None]
  - FEBRILE NEUTROPENIA [None]
  - GAMMA-GLUTAMYLTRANSFERASE INCREASED [None]
  - HAEMATOCRIT INCREASED [None]
  - HEADACHE [None]
  - HYPERTENSION [None]
  - HYPOKALAEMIA [None]
  - MALAISE [None]
  - NAUSEA [None]
  - PANCYTOPENIA [None]
  - RASH [None]
  - RENAL IMPAIRMENT [None]
  - STOMATITIS [None]
